FAERS Safety Report 25460933 (Version 1)
Quarter: 2025Q2

REPORT INFORMATION
  Report Type: Spontaneous
  Country: GB (occurrence: GB)
  Receive Date: 20250620
  Receipt Date: 20250620
  Transmission Date: 20250716
  Serious: Yes (Other)
  Sender: AUROBINDO
  Company Number: GB-MHRA-EMIS-5812-18073f85-4dc8-46e4-b722-3d6a8cf60a8a

PATIENT
  Age: 61 Year
  Sex: Female
  Weight: 76 kg

DRUGS (5)
  1. NAPROXEN [Suspect]
     Active Substance: NAPROXEN
     Indication: Product used for unknown indication
     Dosage: 01 DOSAGE FORM, TWO TIMES A DAY
     Route: 065
  2. CODEINE [Concomitant]
     Active Substance: CODEINE
     Indication: Product used for unknown indication
     Route: 065
     Dates: start: 20250228
  3. COCODAMOL [Concomitant]
     Active Substance: ACETAMINOPHEN\CODEINE PHOSPHATE
     Indication: Product used for unknown indication
     Route: 065
     Dates: start: 20250407
  4. IBUPROFEN [Concomitant]
     Active Substance: IBUPROFEN
     Indication: Product used for unknown indication
     Dosage: 50 GRAM, 3 TIMES A DAY
     Route: 065
     Dates: start: 20250228
  5. Phorpain [Concomitant]
     Indication: Product used for unknown indication
     Dosage: 120 GRAM, FOUR TIMES/DAY
     Route: 065
     Dates: start: 20250325

REACTIONS (1)
  - Essential hypertension [Recovered/Resolved]
